FAERS Safety Report 18866512 (Version 1)
Quarter: 2021Q1

REPORT INFORMATION
  Report Type: Spontaneous
  Country: PT (occurrence: PT)
  Receive Date: 20210208
  Receipt Date: 20210208
  Transmission Date: 20210420
  Serious: Yes (Life-Threatening)
  Sender: FDA-Public Use
  Company Number: PT-GILEAD-2021-0516207

PATIENT
  Age: 77 Year
  Sex: Female
  Weight: 65 kg

DRUGS (7)
  1. CODEINA [Concomitant]
     Active Substance: CODEINE
     Dosage: UNK
     Dates: start: 20210120, end: 20210121
  2. ESCITALOPRAM [Concomitant]
     Active Substance: ESCITALOPRAM OXALATE
     Dosage: 10 MG, QD
     Route: 048
     Dates: start: 20200702
  3. ALPRAZOLAM. [Concomitant]
     Active Substance: ALPRAZOLAM
     Dosage: UNK
     Route: 048
     Dates: start: 20210120, end: 20210121
  4. VEKLURY [Suspect]
     Active Substance: REMDESIVIR
     Indication: COVID-19 PNEUMONIA
     Dosage: 100 MG, QD
     Route: 042
     Dates: start: 20210120, end: 20210121
  5. QUETIAPINA ROCOZ SR [Concomitant]
     Dosage: 50 MG, QD
     Route: 048
     Dates: start: 20210120, end: 20210121
  6. CALCIUM GLUCONATE. [Concomitant]
     Active Substance: CALCIUM GLUCONATE
     Dosage: 1 G, QD
     Route: 042
     Dates: start: 20210120, end: 20210121
  7. VASTAREL LM [Concomitant]
     Active Substance: TRIMETAZIDINE
     Dosage: 35 MG, QD
     Route: 048
     Dates: start: 20201204

REACTIONS (1)
  - Sinus bradycardia [Recovered/Resolved]

NARRATIVE: CASE EVENT DATE: 20210121
